FAERS Safety Report 6937421-9 (Version None)
Quarter: 2010Q3

REPORT INFORMATION
  Report Type: 
  Country: None (occurrence: None)
  Receive Date: 20100823
  Receipt Date: 20100813
  Transmission Date: 20110219
  Serious: No
  Sender: FDA-Public Use
  Company Number: US-US-EMD SERONO, INC.-7014445

PATIENT
  Sex: Female

DRUGS (1)
  1. REBIF [Suspect]
     Indication: MULTIPLE SCLEROSIS
     Dates: start: 20100527

REACTIONS (5)
  - ANKLE FRACTURE [None]
  - FALL [None]
  - HEPATIC ENZYME INCREASED [None]
  - HYPOAESTHESIA [None]
  - PARAESTHESIA [None]
